FAERS Safety Report 8970517 (Version 1)
Quarter: 2012Q4

REPORT INFORMATION
  Report Type: 
  Country: US (occurrence: US)
  Receive Date: 20121218
  Receipt Date: 20121218
  Transmission Date: 20130627
  Serious: No
  Sender: FDA-Public Use
  Company Number: US-BRISTOL-MYERS SQUIBB COMPANY-16503054

PATIENT
  Age: 68 Year
  Sex: Female
  Weight: 73.47 kg

DRUGS (14)
  1. ABILIFY [Suspect]
     Indication: DYSTHYMIC DISORDER
     Dosage: Initially 2mg on 07Jan09
Dose: b/w 2 mg and 5 mg 
Int:30Sep11
     Route: 048
     Dates: start: 20110906, end: 2012
  2. ABILIFY [Suspect]
     Indication: DEPRESSION
     Dosage: Initially 2mg on 07Jan09
Dose: b/w 2 mg and 5 mg 
Int:30Sep11
     Route: 048
     Dates: start: 20110906, end: 2012
  3. PAXIL [Suspect]
  4. BUSPAR [Concomitant]
  5. AMBIEN [Concomitant]
  6. TRAZODONE HCL [Concomitant]
  7. EFFEXOR [Concomitant]
  8. CELEXA [Concomitant]
  9. CYMBALTA [Concomitant]
  10. ATIVAN [Concomitant]
  11. LUNESTA [Concomitant]
  12. REMERGIL [Concomitant]
  13. PROZAC [Concomitant]
  14. KLONOPIN [Concomitant]

REACTIONS (2)
  - Dyskinesia [Recovering/Resolving]
  - Drug ineffective [Unknown]
